FAERS Safety Report 4416157-2 (Version None)
Quarter: 2004Q3

REPORT INFORMATION
  Report Type: 
  Country: None (occurrence: None)
  Receive Date: 20040805
  Receipt Date: 20040730
  Transmission Date: 20050211
  Serious: Yes (Other)
  Sender: FDA-Public Use
  Company Number: US-BRISTOL-MYERS SQUIBB COMPANY-12657409

PATIENT
  Age: 71 Year
  Sex: Female
  Weight: 68 kg

DRUGS (5)
  1. ERBITUX [Suspect]
     Indication: COLORECTAL CANCER
     Route: 042
     Dates: start: 20040730, end: 20040730
  2. ANZEMET [Concomitant]
     Indication: PREMEDICATION
     Route: 042
     Dates: start: 20040730, end: 20040730
  3. BENADRYL [Concomitant]
     Indication: PREMEDICATION
     Route: 042
     Dates: start: 20040730, end: 20040730
  4. CIMETIDINE [Concomitant]
     Indication: PREMEDICATION
     Route: 042
     Dates: start: 20040730, end: 20040730
  5. DECADRON [Concomitant]
     Indication: PREMEDICATION
     Route: 042
     Dates: start: 20040730, end: 20040730

REACTIONS (8)
  - BLOOD PRESSURE INCREASED [None]
  - ERYTHEMA [None]
  - FEELING ABNORMAL [None]
  - FEELING COLD [None]
  - HEART RATE ABNORMAL [None]
  - NAUSEA [None]
  - PRURITUS [None]
  - VOMITING [None]
